FAERS Safety Report 25368254 (Version 1)
Quarter: 2025Q2

REPORT INFORMATION
  Report Type: Spontaneous
  Country: US (occurrence: None)
  Receive Date: 20250527
  Receipt Date: 20250527
  Transmission Date: 20250717
  Serious: Yes (Other)
  Sender: FDA-CTU
  Company Number: None

PATIENT
  Age: 48 Year
  Sex: Female
  Weight: 75.6 kg

DRUGS (22)
  1. RINVOQ [Suspect]
     Active Substance: UPADACITINIB
     Indication: Dermatitis atopic
     Dosage: FREQUENCY : DAILY;?
     Route: 048
     Dates: start: 20241231, end: 20250527
  2. ALBUTEROL [Concomitant]
     Active Substance: ALBUTEROL
  3. ALPRAZOLAM [Concomitant]
     Active Substance: ALPRAZOLAM
  4. AMANTADINE [Concomitant]
     Active Substance: AMANTADINE
  5. AMLODIPINE [Concomitant]
     Active Substance: AMLODIPINE BESYLATE
  6. ATORVASTATIN [Concomitant]
     Active Substance: ATORVASTATIN
  7. Breztri 160-9-4.8 [Concomitant]
  8. CLOBETASOL [Concomitant]
     Active Substance: CLOBETASOL
  9. Digoxin 0.25mg [Concomitant]
  10. DILTIAZEM [Concomitant]
     Active Substance: DILTIAZEM
  11. FLUOXETINE [Concomitant]
     Active Substance: FLUOXETINE HYDROCHLORIDE
  12. GABAPENTIN [Concomitant]
     Active Substance: GABAPENTIN
  13. INSULIN LISPRO [Concomitant]
     Active Substance: INSULIN LISPRO
  14. MELOXICAM [Concomitant]
     Active Substance: MELOXICAM
  15. MIDODRINE [Concomitant]
     Active Substance: MIDODRINE
  16. MINOXIDIL [Concomitant]
     Active Substance: MINOXIDIL
  17. LISINOPRIL [Concomitant]
     Active Substance: LISINOPRIL
  18. JARDIANCE [Concomitant]
     Active Substance: EMPAGLIFLOZIN
  19. Pentazocine-naloxone 50-0.5 [Concomitant]
  20. SPIRONOLACTONE [Concomitant]
     Active Substance: SPIRONOLACTONE
  21. TRAZODONE [Concomitant]
     Active Substance: TRAZODONE HYDROCHLORIDE
  22. Vraylar 4.5mg [Concomitant]

REACTIONS (6)
  - Rash [None]
  - Dyspnoea [None]
  - Throat tightness [None]
  - Pruritus [None]
  - Tinnitus [None]
  - Blister [None]

NARRATIVE: CASE EVENT DATE: 20250527
